FAERS Safety Report 20553213 (Version 2)
Quarter: 2022Q1

REPORT INFORMATION
  Report Type: Spontaneous
  Country: JP (occurrence: JP)
  Receive Date: 20220304
  Receipt Date: 20220316
  Transmission Date: 20220423
  Serious: Yes (Hospitalization, Other)
  Sender: FDA-Public Use
  Company Number: JP-MSD-M2022-07484

PATIENT
  Sex: Female

DRUGS (3)
  1. KEYTRUDA [Suspect]
     Active Substance: PEMBROLIZUMAB
     Indication: Triple negative breast cancer
     Dosage: 200 MILLIGRAM, Q3W
     Route: 041
     Dates: start: 202112, end: 202202
  2. CARBOPLATIN [Suspect]
     Active Substance: CARBOPLATIN
     Indication: Triple negative breast cancer
     Dosage: AUC2, QW(3 WEEKS A CYCLE WITH ADMINISTRATION IN 2 WEEKS AND WITHDRAWAL IN 1 WEEK)
     Route: 041
     Dates: start: 202112, end: 202202
  3. GEMZAR [Suspect]
     Active Substance: GEMCITABINE HYDROCHLORIDE
     Indication: Triple negative breast cancer
     Dosage: 1000 MILLIGRAM, QW (3 WEEKS A CYCLE WITH ADMINISTRATION IN 2 WEEKS AND WITHDRAWAL IN 1 WEEK)
     Route: 041
     Dates: start: 202112, end: 202202

REACTIONS (4)
  - Malignant pleural effusion [Unknown]
  - Disseminated intravascular coagulation [Recovered/Resolved]
  - Myelosuppression [Unknown]
  - Anaemia [Unknown]

NARRATIVE: CASE EVENT DATE: 20220201
